FAERS Safety Report 20495560 (Version 1)
Quarter: 2022Q1

REPORT INFORMATION
  Report Type: Spontaneous
  Country: GB (occurrence: None)
  Receive Date: 20220221
  Receipt Date: 20220221
  Transmission Date: 20220423
  Serious: Yes (Other)
  Sender: FDA-Public Use
  Company Number: 2022A069969

PATIENT
  Age: 71 Year
  Sex: Female
  Weight: 80 kg

DRUGS (12)
  1. ROSUVASTATIN [Suspect]
     Active Substance: ROSUVASTATIN
     Dosage: 40
     Route: 048
     Dates: start: 20201204
  2. AMLODIPINE [Concomitant]
     Active Substance: AMLODIPINE BESYLATE
     Indication: Blood pressure measurement
     Dosage: 1 TAKE EVERY MORNING EVERY DAY
     Dates: start: 20180515
  3. ASPIRIN [Concomitant]
     Active Substance: ASPIRIN
     Dosage: 1
     Dates: start: 20180116
  4. BISOPROLOL [Concomitant]
     Active Substance: BISOPROLOL
     Indication: Blood pressure measurement
     Dosage: 1 TAKE EACH MORNING
     Dates: start: 20180515
  5. CANDESARTAN [Concomitant]
     Active Substance: CANDESARTAN
     Indication: Blood pressure measurement
     Dosage: 1
     Dates: start: 20191205
  6. DIHYDROCODEINE [Concomitant]
     Active Substance: DIHYDROCODEINE
     Indication: Pain
     Dosage: 1-2
     Dates: start: 20200325
  7. EZETIMIBE [Concomitant]
     Active Substance: EZETIMIBE
     Indication: Blood cholesterol
     Dosage: 1 EACH NIGHT
     Dates: start: 20201204
  8. NITROGLYCERIN [Concomitant]
     Active Substance: NITROGLYCERIN
     Indication: Chest pain
     Dates: start: 20180116
  9. HYPROMELLOSES [Concomitant]
     Active Substance: HYPROMELLOSES
     Dosage: 1 TO BOTH EYES
     Dates: start: 20190214
  10. LANSOPRAZOLE [Concomitant]
     Active Substance: LANSOPRAZOLE
     Indication: Dyspepsia
     Dosage: ONE EACH MORNING
     Dates: start: 20191205
  11. ISOSORBIDE MONONITRATE [Concomitant]
     Active Substance: ISOSORBIDE MONONITRATE
     Dosage: 0.5 TAKE IN THE MORNING
     Dates: start: 20210512
  12. ALBUTEROL [Concomitant]
     Active Substance: ALBUTEROL
     Dosage: 2
     Route: 055
     Dates: start: 20190423

REACTIONS (2)
  - Muscle spasms [Recovered/Resolved]
  - Diarrhoea [Unknown]

NARRATIVE: CASE EVENT DATE: 20201207
